FAERS Safety Report 15798601 (Version 1)
Quarter: 2019Q1

REPORT INFORMATION
  Report Type: Spontaneous
  Country: US (occurrence: US)
  Receive Date: 20190102
  Receipt Date: 20190102
  Transmission Date: 20190417
  Serious: No
  Sender: FDA-Public Use
  Company Number: None

PATIENT

DRUGS (2)
  1. ALPRAZOLAM 0.25MG [Suspect]
     Active Substance: ALPRAZOLAM
  2. ESCITALOPRAM 10MG [Suspect]
     Active Substance: ESCITALOPRAM OXALATE

REACTIONS (2)
  - Drug dispensed to wrong patient [None]
  - Wrong product administered [None]
